FAERS Safety Report 4439561-5 (Version None)
Quarter: 2004Q3

REPORT INFORMATION
  Report Type: 
  Country: None (occurrence: None)
  Receive Date: 20040902
  Receipt Date: 20040825
  Transmission Date: 20050211
  Serious: Yes (Other)
  Sender: FDA-Public Use
  Company Number: JP-JNJFOC-20040808729

PATIENT
  Sex: Female

DRUGS (6)
  1. REMICADE [Suspect]
  2. REMICADE [Suspect]
     Indication: CROHN'S DISEASE
  3. PREDONINE [Concomitant]
  4. RHEUMATREX [Concomitant]
     Route: 049
  5. AZULIFIDINE [Concomitant]
     Route: 049
  6. LENDORM [Concomitant]
     Route: 049

REACTIONS (4)
  - DYSPNOEA [None]
  - HEADACHE [None]
  - INFUSION RELATED REACTION [None]
  - RHEUMATOID ARTHRITIS [None]
